FAERS Safety Report 14554514 (Version 3)
Quarter: 2018Q3

REPORT INFORMATION
  Report Type: Report from Study
  Country: FR (occurrence: FR)
  Receive Date: 20180220
  Receipt Date: 20180813
  Transmission Date: 20181010
  Serious: Yes (Death, Life-Threatening, Hospitalization, Other)
  Sender: FDA-Public Use
  Company Number: FR-TEVA-2018-FR-857732

PATIENT
  Age: 59 Year
  Sex: Male
  Weight: 97 kg

DRUGS (2)
  1. DOXORUBICIN [Suspect]
     Active Substance: DOXORUBICIN
     Indication: CHEMOTHERAPY
     Route: 065
     Dates: start: 20151228
  2. STREPTOZOCINE [Suspect]
     Active Substance: STREPTOZOCIN
     Indication: CHEMOTHERAPY
     Route: 065
     Dates: start: 20151228

REACTIONS (7)
  - Thrombocytopenia [Fatal]
  - Neutropenia [Fatal]
  - Lymphocyte count decreased [Fatal]
  - Anaemia [Unknown]
  - Acute kidney injury [Fatal]
  - Fluid retention [Fatal]
  - Leukopenia [Fatal]

NARRATIVE: CASE EVENT DATE: 20160103
